FAERS Safety Report 10109194 (Version 1)
Quarter: 2014Q2

REPORT INFORMATION
  Report Type: Spontaneous
  Country: US (occurrence: None)
  Receive Date: 20140424
  Receipt Date: 20140424
  Transmission Date: 20141212
  Serious: Yes (Other)
  Sender: FDA-Public Use
  Company Number: None

PATIENT
  Age: 73 Year
  Sex: Female
  Weight: 81.65 kg

DRUGS (16)
  1. XARELTO [Suspect]
     Indication: THROMBOSIS PROPHYLAXIS
     Dosage: DINNER, BY MOUTH
     Dates: start: 20130807, end: 20130912
  2. XARELTO [Suspect]
     Indication: ATRIAL FIBRILLATION
     Dosage: DINNER, BY MOUTH
     Dates: start: 20130807, end: 20130912
  3. ARMOUR THYROID [Concomitant]
  4. ATENOLOL [Concomitant]
  5. TRAMADOL [Concomitant]
  6. PRILOSEC [Concomitant]
  7. FOLIC ACID [Concomitant]
  8. PREDNISONE [Concomitant]
  9. METHOTREXATE [Concomitant]
  10. CALCIUM [Concomitant]
  11. B COMPLEX [Concomitant]
  12. MULTI VITAMIN [Concomitant]
  13. IRON [Concomitant]
  14. RED YEAST RICE [Concomitant]
  15. FLAXSEED OIL [Concomitant]
  16. GLUCOSMIN/CONDROITIN [Concomitant]

REACTIONS (4)
  - Pruritus [None]
  - Scab [None]
  - Skin discolouration [None]
  - Eye swelling [None]
